FAERS Safety Report 9255682 (Version 6)
Quarter: 2014Q1

REPORT INFORMATION
  Report Type: Spontaneous
  Country: US (occurrence: US)
  Receive Date: 20130425
  Receipt Date: 20140107
  Transmission Date: 20141002
  Serious: Yes (Hospitalization, Other)
  Sender: FDA-Public Use
  Company Number: US-PFIZER INC-2013129453

PATIENT
  Age: 65 Year
  Sex: Female
  Weight: 59 kg

DRUGS (30)
  1. LYRICA [Suspect]
     Indication: PAIN
     Dosage: 150 MG, 3X/DAY
     Route: 048
     Dates: start: 2004
  2. LYRICA [Suspect]
     Indication: NEURALGIA
     Dosage: 150MG AT ONE CAPSULE EVERY MORNING, ONE CAPSULE EVERY AFTERNOON, AND TWO CAPS EVERY BEDTIME
     Route: 048
     Dates: start: 20130501
  3. LYRICA [Suspect]
     Dosage: 75MG, UNK
     Route: 048
  4. LYRICA [Suspect]
     Dosage: 150 MG, ONE CAPS EVERY MORNING (Q AM), ONE CAP EVERY (Q) AFTERNOON, TWO CAPS EVERY BEDTIME (QHS)
     Route: 048
     Dates: start: 20130725
  5. LYRICA [Suspect]
     Dosage: 150 MG, 3X/DAY
  6. LYRICA [Suspect]
     Dosage: 150MG, 3X/DAY (1 CAP(S) PO (ORAL) Q A.M., 1 CAP Q AFTERNOON, 2 CAPS Q HS)
     Route: 048
     Dates: start: 20131212
  7. OXYCONTIN [Concomitant]
     Indication: NEURALGIA
     Dosage: 30 MG, (Q8 HRS)
     Route: 048
  8. OXYCONTIN [Concomitant]
     Dosage: 20 MG, 4X/DAY
  9. SIMVASTATIN [Concomitant]
     Indication: BLOOD CHOLESTEROL ABNORMAL
     Dosage: 40 MG, ONE TABLET  BY MOUTH AT BEDTIME
     Route: 048
  10. VITAMIN D [Concomitant]
     Dosage: 50000 IU, 2X/WEEK
  11. BLACK COHOSH [Concomitant]
     Indication: HOT FLUSH
     Dosage: UNK, AS DIRECTED
  12. PERCOCET [Concomitant]
     Indication: PAIN
     Dosage: 5/325 MG, ONE TABLET THREE TIMES A DAY AS NEEDED
     Route: 048
  13. PERCOCET [Concomitant]
     Indication: NEURALGIA
     Dosage: 5/325 MG, FOUR TABLETS PER DAY AS NEEDED
     Route: 048
  14. VITAMIN D3 [Concomitant]
     Indication: VITAMIN D DEFICIENCY
     Dosage: 2000 IU (2 TABLETS) TOTAL OF 4000 IU EVERY DAY
     Route: 048
  15. VITAMIN C [Concomitant]
     Indication: SUPPLEMENTATION THERAPY
     Dosage: 500 MG, 1X/DAY (QD)
     Route: 048
  16. VITAMIN B12 [Concomitant]
     Indication: SUPPLEMENTATION THERAPY
     Dosage: 500 UG, 1X/DAY (Q DAY)
     Route: 048
  17. ZOSTAVAX [Concomitant]
     Indication: HERPES ZOSTER
     Dosage: 0.65 ML, ONCE
     Route: 058
  18. CALCIUM 600+ D [Concomitant]
     Indication: BONE DISORDER
     Dosage: CALCIUM 600+D 200 IU  AT 1 QD
     Route: 048
  19. FISH OIL [Concomitant]
     Indication: BLOOD CHOLESTEROL INCREASED
     Dosage: 1000 MG, 2X/DAY
     Route: 048
  20. MIRALAX [Concomitant]
     Dosage: 527 G, 1X/DAY (527, 0, 4, 5, MIX 17GRAMS IN 8OZ OF WATER AND DRINK EVERY DAY )
     Route: 048
  21. TAMOXIFEN [Concomitant]
     Dosage: 10 MG, 1X/DAY
     Route: 048
  22. PREGABALIN [Concomitant]
     Dosage: UNK
  23. CLINDAMYCIN [Concomitant]
     Indication: ACNE
     Dosage: UNK
     Route: 061
  24. CLINDAMYCIN [Concomitant]
     Dosage: UNK
     Route: 061
  25. CLINDAMYCIN [Concomitant]
     Dosage: UNK
     Route: 061
  26. POLYETHYLENE GLYCOL [Concomitant]
     Dosage: 17 G, 2X/DAY
     Route: 048
  27. NAPROSYN [Concomitant]
  28. PREMPRO [Concomitant]
  29. ACETAMINOPHEN W/OXYCODONE [Concomitant]
     Dosage: UNK
  30. SERTRALINE [Concomitant]
     Dosage: UNK

REACTIONS (16)
  - Breast cancer female [Recovering/Resolving]
  - Pain [Unknown]
  - Hypercholesterolaemia [Recovering/Resolving]
  - Vitamin D deficiency [Unknown]
  - Activities of daily living impaired [Unknown]
  - Sensory disturbance [Unknown]
  - Burning sensation [Unknown]
  - Paraesthesia [Unknown]
  - Hypoaesthesia [Unknown]
  - Muscle spasms [Unknown]
  - Stress urinary incontinence [Unknown]
  - Sleep disorder [Unknown]
  - Depression [Unknown]
  - Frustration [Unknown]
  - Drug ineffective [Unknown]
  - Pain in extremity [Unknown]
